FAERS Safety Report 5696728-6 (Version None)
Quarter: 2008Q2

REPORT INFORMATION
  Report Type: 
  Country: None (occurrence: None)
  Receive Date: 20080408
  Receipt Date: 20061005
  Transmission Date: 20081010
  Serious: No
  Sender: FDA-Public Use
  Company Number: US-BAYER-US-2006-030146

PATIENT
  Age: 19 Year
  Sex: Female

DRUGS (1)
  1. YASMIN [Suspect]
     Indication: OVARIAN CYST
     Route: 048
     Dates: start: 20060831, end: 20060907

REACTIONS (2)
  - ABDOMINAL PAIN [None]
  - MENSTRUATION DELAYED [None]
